FAERS Safety Report 9203125 (Version 1)
Quarter: 2013Q1

REPORT INFORMATION
  Report Type: Spontaneous
  Country: US (occurrence: None)
  Receive Date: 20120709
  Receipt Date: 20120709
  Transmission Date: 20140127
  Serious: Yes (Other)
  Sender: FDA-Public Use
  Company Number: PHEH2011US01410

PATIENT
  Age: 54 Year
  Sex: Male
  Weight: 70.3 kg

DRUGS (12)
  1. GLEEVEC [Suspect]
     Indication: ACUTE MYELOID LEUKAEMIA (IN REMISSION)
     Route: 048
     Dates: start: 20110419
  2. VITAMIN C [Concomitant]
  3. FLAXSEED OIL (LINUM USITATISSIMUM SEED) [Concomitant]
  4. TRAMADOL HYDROCHLORIDE (TRAMADOL HYDROCLORIDE) [Concomitant]
  5. FISH OIL (FISH OIL) [Concomitant]
  6. PROCHLOROPERAZINE (PROCHLOROPERAZINE) [Concomitant]
  7. OXYCODONE (OXYCODONE) [Concomitant]
  8. MEDROL (METHYLPREDNISOLONE) [Concomitant]
  9. CELEXA (CITALOPRAM HYDROBROMIDE) [Concomitant]
  10. RAPAMUNE (SIROLIMUS) [Concomitant]
  11. LEVAQUIN (LEVOFLOXACIN) [Concomitant]
  12. VFEND (VORICONAZOLE) INFUSION [Concomitant]

REACTIONS (9)
  - Diarrhoea [None]
  - Fluid retention [None]
  - Fatigue [None]
  - Nausea [None]
  - Dizziness [None]
  - Insomnia [None]
  - Hypoaesthesia [None]
  - Swelling [None]
  - Vomiting [None]
